FAERS Safety Report 18394765 (Version 5)
Quarter: 2020Q4

REPORT INFORMATION
  Report Type: Spontaneous
  Country: US (occurrence: US)
  Receive Date: 20201016
  Receipt Date: 20201106
  Transmission Date: 20210114
  Serious: Yes (Other)
  Sender: FDA-Public Use
  Company Number: US-PFIZER INC-2020007838

PATIENT
  Age: 72 Year
  Sex: Female
  Weight: 57 kg

DRUGS (3)
  1. ACIPHEX [Concomitant]
     Active Substance: RABEPRAZOLE SODIUM
     Indication: GASTROOESOPHAGEAL REFLUX DISEASE
     Dosage: UNK
  2. XELJANZ [Suspect]
     Active Substance: TOFACITINIB CITRATE
     Indication: COLITIS ULCERATIVE
     Dosage: 5 MG, 2X/DAY
  3. ATORVASTATIN [Concomitant]
     Active Substance: ATORVASTATIN
     Indication: BLOOD CHOLESTEROL ABNORMAL
     Dosage: UNK( A REAL SMALL MILLIGRAMS)

REACTIONS (10)
  - Pain in extremity [Unknown]
  - Pain [Unknown]
  - Nervousness [Unknown]
  - Hypoaesthesia [Unknown]
  - Anxiety [Unknown]
  - Neuralgia [Unknown]
  - Gait inability [Unknown]
  - Nerve compression [Unknown]
  - Paraesthesia [Unknown]
  - Gait disturbance [Unknown]
